FAERS Safety Report 5888386-2 (Version None)
Quarter: 2008Q3

REPORT INFORMATION
  Report Type: 
  Country: None (occurrence: None)
  Receive Date: 20080916
  Receipt Date: 20080916
  Transmission Date: 20090109
  Serious: Yes (Other)
  Sender: FDA-Public Use
  Company Number: None

PATIENT
  Age: 61 Year
  Sex: Female
  Weight: 81.6475 kg

DRUGS (2)
  1. METHOTREXATE [Suspect]
     Indication: RHEUMATOID ARTHRITIS
     Dosage: 6 TABLETS WEEKLY PO
     Route: 048
     Dates: start: 20080601, end: 20080630
  2. METHOTREXATE [Suspect]
     Indication: RHEUMATOID ARTHRITIS
     Dosage: 6 TABLETS WEEKLY PO
     Route: 048
     Dates: start: 20080707, end: 20080906

REACTIONS (1)
  - EPISTAXIS [None]
